FAERS Safety Report 5044487-2 (Version None)
Quarter: 2006Q3

REPORT INFORMATION
  Report Type: 
  Country: None (occurrence: None)
  Receive Date: 20060706
  Receipt Date: 20060628
  Transmission Date: 20061208
  Serious: Yes (Hospitalization)
  Sender: FDA-Public Use
  Company Number: FR-GLAXOSMITHKLINE-B0429154A

PATIENT
  Age: 78 Year
  Sex: Female

DRUGS (6)
  1. AUGMENTIN '125' [Suspect]
     Dosage: 2G TWICE PER DAY
     Route: 048
     Dates: start: 20060517, end: 20060519
  2. CORDARONE [Suspect]
     Dosage: 200MG PER DAY
     Route: 048
     Dates: start: 20060517, end: 20060519
  3. DIAMICRON [Concomitant]
     Dosage: 30MG PER DAY
     Route: 048
     Dates: start: 20060517, end: 20060518
  4. PREVISCAN [Concomitant]
     Dosage: 20MG PER DAY
     Route: 048
     Dates: start: 20060516, end: 20060519
  5. CALCIPARINE [Concomitant]
     Route: 058
  6. ROCEPHINE IV [Concomitant]
     Route: 042

REACTIONS (4)
  - ALANINE AMINOTRANSFERASE INCREASED [None]
  - ASPARTATE AMINOTRANSFERASE INCREASED [None]
  - GAMMA-GLUTAMYLTRANSFERASE INCREASED [None]
  - HEPATOCELLULAR DAMAGE [None]
